FAERS Safety Report 11766628 (Version 2)
Quarter: 2015Q4

REPORT INFORMATION
  Report Type: Other
  Country: GB (occurrence: GB)
  Receive Date: 20151123
  Receipt Date: 20151215
  Transmission Date: 20160304
  Serious: Yes (Hospitalization)
  Sender: FDA-Public Use
  Company Number: GB-CIPLA LTD.-2015GB08693

PATIENT

DRUGS (8)
  1. IRINOTECAN [Suspect]
     Active Substance: IRINOTECAN
     Indication: COLORECTAL CANCER
     Dosage: 180 MG/M2,  CYCLIC DAY 1 OF EVERY 14-DAY  CYCLE
     Route: 042
     Dates: start: 20150821
  2. LEUCOVORIN. [Concomitant]
     Active Substance: LEUCOVORIN
     Indication: COLORECTAL CANCER
     Dosage: 320 MG/M2, DAYS 1 OF EVERY 14 DAY CYCLE
     Route: 042
     Dates: start: 20150819
  3. FLUOROURACIL. [Suspect]
     Active Substance: FLUOROURACIL
     Dosage: 400 MG/M2, CYCLIC DAY 1 OF EVERY 14-DAY  CYCLE
     Route: 042
     Dates: start: 20150821
  4. PREGABALIN. [Concomitant]
     Active Substance: PREGABALIN
     Indication: PAIN
     Dosage: 100 MG, 2 X /DAY
     Route: 061
     Dates: start: 20150601
  5. FLUOROURACIL. [Suspect]
     Active Substance: FLUOROURACIL
     Indication: COLORECTAL CANCER
     Dosage: 2400 MG/M2, CYCLIC DAY 1 OF EVERY 14-DAY  CYCLE
     Route: 042
     Dates: start: 20150821
  6. VELIPARIB [Suspect]
     Active Substance: VELIPARIB
     Indication: COLORECTAL CANCER
     Dosage: 200 MG, CYCLIC (2 X /DAY DAYS 2 THROUGH  5 OF EVERY 14 DAY  CYCLE)
     Route: 048
     Dates: start: 20150819
  7. MIRTAZAPINE. [Concomitant]
     Active Substance: MIRTAZAPINE
     Indication: ANXIETY
     Dosage: 15 MG, 1 X /DAY
     Route: 048
     Dates: start: 20150601
  8. ZOMORPH [Concomitant]
     Active Substance: MORPHINE SULFATE
     Indication: PAIN
     Dosage: 40 MG, 2 X /DAY
     Route: 048
     Dates: start: 20150401

REACTIONS (6)
  - Disturbance in attention [Unknown]
  - Febrile neutropenia [Unknown]
  - Chills [Unknown]
  - Anal infection [Unknown]
  - Aphasia [Unknown]
  - Dizziness [Unknown]

NARRATIVE: CASE EVENT DATE: 20150928
